FAERS Safety Report 7619587-0 (Version None)
Quarter: 2011Q3

REPORT INFORMATION
  Report Type: 
  Country: None (occurrence: None)
  Receive Date: 20110719
  Receipt Date: 20110708
  Transmission Date: 20111222
  Serious: Yes (Other)
  Sender: FDA-Public Use
  Company Number: US-JNJFOC-20110704243

PATIENT
  Sex: Male
  Weight: 90.72 kg

DRUGS (4)
  1. PRAVASTATIN [Concomitant]
     Indication: BLOOD CHOLESTEROL
     Route: 048
     Dates: start: 20060101
  2. CARVEDILOL [Concomitant]
     Indication: BLOOD PRESSURE
     Route: 048
     Dates: start: 20010101
  3. BLOOD PRESSURE MEDICATION NOS [Concomitant]
     Indication: BLOOD PRESSURE
     Route: 048
  4. REMICADE [Suspect]
     Indication: RHEUMATOID ARTHRITIS
     Route: 042
     Dates: start: 20110101

REACTIONS (4)
  - DIVERTICULITIS [None]
  - PYREXIA [None]
  - ARTHRALGIA [None]
  - DIZZINESS [None]
